FAERS Safety Report 6238144-4 (Version None)
Quarter: 2009Q2

REPORT INFORMATION
  Report Type: 
  Country: None (occurrence: None)
  Receive Date: 20090617
  Receipt Date: 20080619
  Transmission Date: 20091009
  Serious: No
  Sender: FDA-Public Use
  Company Number: 276674

PATIENT
  Age: 42 Year
  Sex: Female

DRUGS (2)
  1. LEVEMIR [Suspect]
     Dosage: 24 U, QD (PM), SUBCUTANEOUS
     Route: 058
     Dates: start: 20060101
  2. NOVOLOG [Suspect]
     Dosage: 12 U, TID, SUBCUTANEOUS
     Route: 058
     Dates: start: 20060101

REACTIONS (1)
  - BLOOD GLUCOSE INCREASED [None]
